FAERS Safety Report 4540511-1 (Version None)
Quarter: 2004Q4

REPORT INFORMATION
  Report Type: 
  Country: None (occurrence: None)
  Receive Date: 20041229
  Receipt Date: 20031112
  Transmission Date: 20050328
  Serious: Yes (Hospitalization, Other)
  Sender: FDA-Public Use
  Company Number: 200319847US

PATIENT
  Sex: Male

DRUGS (11)
  1. ARAVA [Suspect]
     Indication: RHEUMATOID ARTHRITIS
     Route: 048
     Dates: start: 20010502, end: 20020701
  2. CELEBREX [Concomitant]
     Route: 048
     Dates: start: 19990422
  3. TYLENOL W/ CODEINE NO. 3 [Concomitant]
  4. MOBIC [Concomitant]
     Dates: end: 20010820
  5. ULTRAM [Concomitant]
  6. PREDNISONE [Concomitant]
  7. RELAFEN [Concomitant]
  8. HYDROCODONE [Concomitant]
  9. VIOXX [Concomitant]
  10. METHOTREXATE [Concomitant]
  11. PLAQUENIL [Concomitant]

REACTIONS (35)
  - ABDOMINAL PAIN [None]
  - ASTHENIA [None]
  - BRAIN STEM INFARCTION [None]
  - CEREBROVASCULAR ACCIDENT [None]
  - CHILLS [None]
  - COORDINATION ABNORMAL [None]
  - CORONARY ARTERY STENOSIS [None]
  - DEAFNESS [None]
  - DYSPEPSIA [None]
  - DYSPNOEA [None]
  - ERECTILE DYSFUNCTION [None]
  - EYE SWELLING [None]
  - FATIGUE [None]
  - HEADACHE [None]
  - HYPERHIDROSIS [None]
  - LEUKOCYTOSIS [None]
  - MALAISE [None]
  - MUCOSAL INFLAMMATION [None]
  - MUSCULOSKELETAL STIFFNESS [None]
  - NAUSEA [None]
  - NIGHT SWEATS [None]
  - PAIN [None]
  - PAIN IN JAW [None]
  - PARAESTHESIA [None]
  - PHONOPHOBIA [None]
  - PHOTOPHOBIA [None]
  - PROSTATITIS [None]
  - RASH PRURITIC [None]
  - RECTAL HAEMORRHAGE [None]
  - TEMPORAL ARTERITIS [None]
  - URINARY TRACT INFECTION [None]
  - VASCULITIS [None]
  - VISION BLURRED [None]
  - VOMITING [None]
  - WHITE BLOOD CELL COUNT DECREASED [None]
